FAERS Safety Report 18695601 (Version 1)
Quarter: 2021Q1

REPORT INFORMATION
  Report Type: Spontaneous
  Country: DE (occurrence: DE)
  Receive Date: 20210104
  Receipt Date: 20210104
  Transmission Date: 20210419
  Serious: Yes (Other)
  Sender: FDA-Public Use
  Company Number: DE-PFIZER INC-2020515137

PATIENT
  Age: 40 Year
  Sex: Male
  Weight: 69 kg

DRUGS (1)
  1. HALCION [Suspect]
     Active Substance: TRIAZOLAM
     Dosage: 1 DF, AS NEEDED
     Dates: start: 201812

REACTIONS (1)
  - Erectile dysfunction [Not Recovered/Not Resolved]

NARRATIVE: CASE EVENT DATE: 201812
